FAERS Safety Report 8452581-9 (Version None)
Quarter: 2012Q2

REPORT INFORMATION
  Report Type: 
  Country: None (occurrence: None)
  Receive Date: 20120620
  Receipt Date: 20120503
  Transmission Date: 20120825
  Serious: No
  Sender: FDA-Public Use
  Company Number: US-VERTEX PHARMACEUTICALS INC.-AE-2012-005606

PATIENT
  Sex: Female
  Weight: 102.15 kg

DRUGS (13)
  1. INCIVEK [Suspect]
     Indication: HEPATITIS C
     Route: 048
     Dates: start: 20120412
  2. HYDROXYZINE [Concomitant]
     Indication: PRURITUS
     Route: 048
  3. VITAMIN D [Concomitant]
     Route: 048
  4. DIAZEPAM [Concomitant]
     Route: 048
  5. LAMICTAL [Concomitant]
     Route: 048
  6. PEGASYS [Concomitant]
     Indication: HEPATITIS C
     Route: 058
     Dates: start: 20120412
  7. VITAMIN AND MINERAL PRENATAL SUPPLEMENT W/ FOLIC ACID CAP [Concomitant]
     Route: 048
  8. RIBAVIRIN [Concomitant]
     Indication: HEPATITIS C
     Route: 048
     Dates: start: 20120412
  9. PRAZOSIN [Concomitant]
     Route: 048
  10. OXCARBAZEPINE [Concomitant]
     Route: 048
  11. SYMBICORT [Concomitant]
     Indication: CHRONIC OBSTRUCTIVE PULMONARY DISEASE
  12. PRISTIQ [Concomitant]
     Route: 048
  13. LISINOPRIL [Concomitant]
     Route: 048

REACTIONS (3)
  - HAEMORRHOIDS [None]
  - FUNGAL INFECTION [None]
  - RASH [None]
